FAERS Safety Report 4434544-3 (Version None)
Quarter: 2004Q3

REPORT INFORMATION
  Report Type: 
  Country: None (occurrence: None)
  Receive Date: 20040723
  Receipt Date: 20040401
  Transmission Date: 20050211
  Serious: Yes (Hospitalization)
  Sender: FDA-Public Use
  Company Number: LOV-US-04-00176(0)

PATIENT
  Age: 83 Year
  Sex: Male
  Weight: 72.5755 kg

DRUGS (7)
  1. ALTOCOR (LOVASTATIN) EXTENDED-RELEASE (TABLETS) [Suspect]
     Indication: HYPERLIPIDAEMIA
     Dosage: 60 MG, PO
     Route: 048
     Dates: start: 20040203, end: 30040308
  2. CARDIZEM LA (DILTIAZEM) [Concomitant]
  3. CALCIUM [Concomitant]
  4. MULTIVITAMIN [Concomitant]
  5. COZAAR [Concomitant]
  6. COUMADIN [Concomitant]
  7. ACTONEL [Concomitant]

REACTIONS (4)
  - ALANINE AMINOTRANSFERASE INCREASED [None]
  - ASPARTATE AMINOTRANSFERASE INCREASED [None]
  - BLOOD CREATININE INCREASED [None]
  - RHABDOMYOLYSIS [None]
